FAERS Safety Report 21905366 (Version 1)
Quarter: 2023Q1

REPORT INFORMATION
  Report Type: Report from Study
  Country: TN (occurrence: TN)
  Receive Date: 20230124
  Receipt Date: 20230124
  Transmission Date: 20230417
  Serious: No
  Sender: FDA-Public Use
  Company Number: TN-BoehringerIngelheim-2021-BI-145814

PATIENT
  Age: 31 Year
  Sex: Female
  Weight: 55 kg

DRUGS (2)
  1. SPESOLIMAB [Suspect]
     Active Substance: SPESOLIMAB
     Indication: Pustular psoriasis
     Route: 058
     Dates: start: 20210929, end: 20211216
  2. SPESOLIMAB [Suspect]
     Active Substance: SPESOLIMAB
     Route: 058
     Dates: start: 20220204

REACTIONS (1)
  - Maternal exposure during pregnancy [Recovered/Resolved]

NARRATIVE: CASE EVENT DATE: 20211219
